FAERS Safety Report 9505857 (Version 1)
Quarter: 2013Q1

REPORT INFORMATION
  Report Type: Spontaneous
  Country: US (occurrence: None)
  Receive Date: 20130219
  Receipt Date: 20130219
  Transmission Date: 20140127
  Serious: Yes (Disabling)
  Sender: FDA-Public Use
  Company Number: 1207USA009846

PATIENT
  Age: 63 Year
  Sex: Female

DRUGS (8)
  1. ZOCOR (SIMVASTATIN) [Suspect]
     Route: 048
  2. LETROZOLE (LETROZOLE) [Suspect]
     Route: 048
  3. CALCICHEW D3 (CALCIUM CARBONATE, CHOLECALCIFEROL) [Concomitant]
  4. LANSOPRAZOLE (LANSOPRAZOLE) [Concomitant]
  5. ACETAMINOPHEN (ACETAMINOPHEN) [Concomitant]
  6. SERTRALINE HYDROCHLORIDE (SERTRALINE HYDROCHLORIDE) [Concomitant]
  7. ASPIRIN (ASPIRIN) [Concomitant]
  8. BISOPROLOL (BISOPROLOL) [Concomitant]

REACTIONS (3)
  - Blood creatine phosphokinase increased [None]
  - Myalgia [None]
  - Arthralgia [None]
